FAERS Safety Report 12467051 (Version 1)
Quarter: 2016Q2

REPORT INFORMATION
  Report Type: Spontaneous
  Country: GB (occurrence: GB)
  Receive Date: 20160615
  Receipt Date: 20160615
  Transmission Date: 20160815
  Serious: Yes (Other)
  Sender: FDA-Public Use
  Company Number: GB-ASTRAZENECA-2016SE61240

PATIENT
  Age: 71 Year
  Sex: Male
  Weight: 120 kg

DRUGS (8)
  1. ORLISTAT [Concomitant]
     Active Substance: ORLISTAT
     Dates: start: 20160526
  2. LISINOPRIL. [Concomitant]
     Active Substance: LISINOPRIL
     Dates: start: 20151123
  3. DAPAGLIFLOZIN [Suspect]
     Active Substance: DAPAGLIFLOZIN
     Indication: DIABETES MELLITUS INADEQUATE CONTROL
     Route: 048
     Dates: start: 20160408, end: 20160526
  4. METFORMIN [Concomitant]
     Active Substance: METFORMIN HYDROCHLORIDE
     Indication: BLOOD GLUCOSE INCREASED
     Dates: start: 20150603
  5. LINAGLIPTIN [Concomitant]
     Active Substance: LINAGLIPTIN
     Indication: BLOOD GLUCOSE INCREASED
     Dates: start: 20160201
  6. PARACETAMOL [Concomitant]
     Active Substance: ACETAMINOPHEN
     Dosage: 2.0DF UNKNOWN
     Dates: start: 20160222
  7. ORLISTAT [Concomitant]
     Active Substance: ORLISTAT
     Dosage: WITH MEAL
     Dates: start: 20160526
  8. SILDENAFIL. [Concomitant]
     Active Substance: SILDENAFIL
     Dosage: 1.0DF UNKNOWN
     Dates: start: 20141008

REACTIONS (2)
  - Renal impairment [Unknown]
  - Blood urea increased [Recovered/Resolved]

NARRATIVE: CASE EVENT DATE: 20160526
